FAERS Safety Report 5269277-7 (Version None)
Quarter: 2007Q1

REPORT INFORMATION
  Report Type: 
  Country: None (occurrence: None)
  Receive Date: 20070319
  Receipt Date: 20070307
  Transmission Date: 20070707
  Serious: Yes (Death, Other)
  Sender: FDA-Public Use
  Company Number: US-PFIZER INC-2006125858

PATIENT
  Sex: Male
  Weight: 96.2 kg

DRUGS (1)
  1. BEXTRA [Suspect]
     Route: 048
     Dates: start: 20010303, end: 20030802

REACTIONS (1)
  - MYOCARDIAL INFARCTION [None]
